FAERS Safety Report 10432149 (Version 1)
Quarter: 2014Q3

REPORT INFORMATION
  Report Type: Report from Study
  Country: US (occurrence: US)
  Receive Date: 20140905
  Receipt Date: 20140905
  Transmission Date: 20150326
  Serious: Yes (Life-Threatening)
  Sender: FDA-Public Use
  Company Number: US-009507513-1409USA001201

PATIENT

DRUGS (7)
  1. HEXADROL [Suspect]
     Active Substance: DEXAMETHASONE
     Indication: PLASMA CELL MYELOMA
     Dosage: 8 MG, CYCLE 1 AND CYCLE 2
     Route: 048
  2. CARFILZOMIB [Concomitant]
     Active Substance: CARFILZOMIB
     Indication: PLASMA CELL MYELOMA
     Dosage: 30-MINUTE IV ON D 1,2,8,9,15, 16, 20 MG/MS ON D1 +2 OF C1, TO 56 MG/M2
     Route: 042
  3. SODIUM CHLORIDE. [Concomitant]
     Active Substance: SODIUM CHLORIDE
     Dosage: 500 ML OF NORMAL SALINE, CYCLE 1
  4. ACYCLOVIR. [Concomitant]
     Active Substance: ACYCLOVIR
     Indication: PROPHYLAXIS
  5. HEXADROL [Suspect]
     Active Substance: DEXAMETHASONE
     Dosage: 20 MG, PRIOR TO EACH CARFILZOMIB DOSE
     Route: 048
  6. PALONOSETRON HYDROCHLORIDE [Concomitant]
     Active Substance: PALONOSETRON HYDROCHLORIDE
     Dosage: 250 MICROGRAM, UNK
  7. SODIUM CHLORIDE. [Concomitant]
     Active Substance: SODIUM CHLORIDE
     Dosage: 250 ML OF NORMAL SALINE CYCLE 2

REACTIONS (1)
  - Gastric ulcer [Unknown]
